FAERS Safety Report 9228874 (Version 1)
Quarter: 2013Q2

REPORT INFORMATION
  Report Type: Spontaneous
  Country: US (occurrence: US)
  Receive Date: 20130412
  Receipt Date: 20130412
  Transmission Date: 20140414
  Serious: No
  Sender: FDA-Public Use
  Company Number: US-PFIZER INC-2013114361

PATIENT
  Sex: Female

DRUGS (1)
  1. ADVIL [Suspect]
     Indication: PROCEDURAL PAIN
     Dosage: 600 MG (200 MG X 3 TABLETS), EVERY 4 HRS
     Route: 048
     Dates: start: 201304

REACTIONS (2)
  - Abdominal discomfort [Unknown]
  - Malaise [Unknown]
